FAERS Safety Report 13029687 (Version 1)
Quarter: 2016Q4

REPORT INFORMATION
  Report Type: Spontaneous
  Country: US (occurrence: US)
  Receive Date: 20161215
  Receipt Date: 20161215
  Transmission Date: 20170207
  Serious: Yes (Other)
  Sender: FDA-Public Use
  Company Number: US-TEVA-720178ACC

PATIENT
  Age: 38 Year
  Sex: Female
  Weight: 83.54 kg

DRUGS (10)
  1. DIAZEPAM. [Concomitant]
     Active Substance: DIAZEPAM
  2. PARAGARD T 380A [Suspect]
     Active Substance: COPPER
     Indication: CONTRACEPTION
     Dates: start: 20161128
  3. ELAVIL [Concomitant]
     Active Substance: AMITRIPTYLINE HYDROCHLORIDE
  4. CYMBALTA [Concomitant]
     Active Substance: DULOXETINE HYDROCHLORIDE
  5. FLOMAX [Concomitant]
     Active Substance: TAMSULOSIN HYDROCHLORIDE
  6. HYZAAR [Concomitant]
     Active Substance: HYDROCHLOROTHIAZIDE\LOSARTAN POTASSIUM
  7. TRAZODONE HYDROCHLORIDE. [Concomitant]
     Active Substance: TRAZODONE HYDROCHLORIDE
  8. URECHOLINE [Concomitant]
     Active Substance: BETHANECHOL CHLORIDE
  9. PRILOSEC [Concomitant]
     Active Substance: OMEPRAZOLE MAGNESIUM
  10. XARELTO [Concomitant]
     Active Substance: RIVAROXABAN

REACTIONS (3)
  - Vaginal haemorrhage [Unknown]
  - Muscle spasms [Unknown]
  - Device dislocation [Not Recovered/Not Resolved]

NARRATIVE: CASE EVENT DATE: 20161130
